FAERS Safety Report 7534816-X (Version None)
Quarter: 2011Q2

REPORT INFORMATION
  Report Type: 
  Country: None (occurrence: None)
  Receive Date: 20110609
  Receipt Date: 20080910
  Transmission Date: 20111010
  Serious: Yes (Death)
  Sender: FDA-Public Use
  Company Number: PHHY2008JP11563

PATIENT
  Age: 72 Year
  Sex: Male

DRUGS (6)
  1. ZOMETA [Suspect]
     Indication: LUNG NEOPLASM MALIGNANT
     Dosage: 4 MG, UNK
     Route: 042
     Dates: start: 20070526, end: 20070526
  2. AMBROXOL HYDROCHLORIDE [Concomitant]
     Dosage: 45 MG, UNK
     Dates: start: 20071109, end: 20071206
  3. IRINOTECAN HCL [Concomitant]
     Dosage: 90 MG
     Route: 042
  4. IRINOTECAN HCL [Concomitant]
     Dosage: 90 MG, UNK
     Route: 042
     Dates: start: 20070530, end: 20070606
  5. LOXOPROFEN [Concomitant]
     Dosage: 6 DF, UNK
     Route: 048
     Dates: start: 20070530, end: 20071206
  6. OXINORM [Concomitant]
     Dosage: 25 MG, UNK
     Route: 048
     Dates: start: 20070525, end: 20070529

REACTIONS (1)
  - DEATH [None]
